FAERS Safety Report 20488091 (Version 1)
Quarter: 2022Q1

REPORT INFORMATION
  Report Type: Spontaneous
  Country: None (occurrence: CN)
  Receive Date: 20220218
  Receipt Date: 20220218
  Transmission Date: 20220423
  Serious: Yes (Other)
  Sender: FDA-Public Use
  Company Number: CN-Jiangsu Hengrui Medicine Co., Ltd.-2125992

PATIENT
  Age: 42 Year
  Sex: Male
  Weight: 73 kg

DRUGS (4)
  1. IRINOTECAN HYDROCHLORIDE [Suspect]
     Active Substance: IRINOTECAN HYDROCHLORIDE
     Indication: Colon cancer
     Route: 041
     Dates: start: 20220121, end: 20220121
  2. LEVOLEUCOVORIN [Suspect]
     Active Substance: LEVOLEUCOVORIN
     Route: 041
     Dates: start: 20220121, end: 20220121
  3. FLUOROURACIL [Suspect]
     Active Substance: FLUOROURACIL
     Route: 041
     Dates: start: 20220121, end: 20220123
  4. CETUXIMAB [Suspect]
     Active Substance: CETUXIMAB
     Route: 041
     Dates: start: 20220121, end: 20220121

REACTIONS (1)
  - Hiccups [Unknown]

NARRATIVE: CASE EVENT DATE: 20220122
